FAERS Safety Report 6344568-7 (Version None)
Quarter: 2009Q3

REPORT INFORMATION
  Report Type: 
  Country: None (occurrence: None)
  Receive Date: 20090903
  Receipt Date: 20090831
  Transmission Date: 20100115
  Serious: Yes (Other)
  Sender: FDA-Public Use
  Company Number: 2009SP020254

PATIENT
  Age: 93 Year
  Sex: Male
  Weight: 68.0396 kg

DRUGS (15)
  1. MIRALAX [Suspect]
     Indication: CONSTIPATION
     Dosage: 17 GM;BID;PO
     Route: 048
     Dates: start: 20050101
  2. MIRALAX [Suspect]
  3. ASPIRIN [Suspect]
     Indication: DRUG USE FOR UNKNOWN INDICATION
  4. NEXIUM [Concomitant]
  5. LASIX [Concomitant]
  6. FLOMAX [Concomitant]
  7. NITROGLYCERIN [Concomitant]
  8. ALPRAZOLAM [Concomitant]
  9. OXYGEN [Concomitant]
  10. IPRATROPIUM BROMIDE [Concomitant]
  11. PULMICORT-100 [Concomitant]
  12. ISOSORBIDE [Concomitant]
  13. CARVEDILOL [Concomitant]
  14. THEOPHYLLINE [Concomitant]
  15. XOPENEX [Concomitant]

REACTIONS (4)
  - ABDOMINAL PAIN LOWER [None]
  - DEFAECATION URGENCY [None]
  - FAECES DISCOLOURED [None]
  - FLATULENCE [None]
